FAERS Safety Report 13075097 (Version 1)
Quarter: 2016Q4

REPORT INFORMATION
  Report Type: Spontaneous
  Country: US (occurrence: US)
  Receive Date: 20161230
  Receipt Date: 20161230
  Transmission Date: 20170207
  Serious: Yes (Other)
  Sender: FDA-Public Use
  Company Number: US-ZYDUS-013014

PATIENT
  Age: 58 Year
  Sex: Female

DRUGS (1)
  1. OMEPRAZOLE. [Suspect]
     Active Substance: OMEPRAZOLE
     Indication: GASTROOESOPHAGEAL REFLUX DISEASE
     Route: 065

REACTIONS (5)
  - Barrett^s oesophagus [Recovered/Resolved]
  - Chest discomfort [Recovered/Resolved]
  - Mycobacterium avium complex infection [Recovered/Resolved]
  - Lung infection [Recovered/Resolved]
  - Cough [Recovered/Resolved]
